FAERS Safety Report 5771949-2 (Version None)
Quarter: 2008Q2

REPORT INFORMATION
  Report Type: 
  Country: None (occurrence: None)
  Receive Date: 20080523
  Receipt Date: 20080514
  Transmission Date: 20081010
  Serious: No
  Sender: FDA-Public Use
  Company Number: 200813560

PATIENT

DRUGS (2)
  1. SANDOGLOBULIN [Suspect]
     Dosage: IV
     Route: 042
  2. SANDOGLOBULIN [Suspect]

REACTIONS (1)
  - HEPATITIS C [None]
